FAERS Safety Report 25433313 (Version 2)
Quarter: 2025Q3

REPORT INFORMATION
  Report Type: Spontaneous
  Country: EU (occurrence: EU)
  Receive Date: 20250613
  Receipt Date: 20250722
  Transmission Date: 20251021
  Serious: Yes (Hospitalization, Other)
  Sender: ALEXION PHARMACEUTICALS
  Company Number: EU-SANOFI-02549663

PATIENT
  Age: 24 Day
  Sex: Female

DRUGS (4)
  1. BEYFORTUS [Suspect]
     Active Substance: NIRSEVIMAB-ALIP
     Indication: Respiratory syncytial virus immunisation
     Dosage: 50 MILLIGRAM, QD
     Dates: end: 2025
  2. BEYFORTUS [Suspect]
     Active Substance: NIRSEVIMAB-ALIP
  3. PREDNISOLONE [Concomitant]
     Active Substance: PREDNISOLONE
  4. AMPICILLIN [Concomitant]
     Active Substance: AMPICILLIN

REACTIONS (2)
  - Pneumonia respiratory syncytial viral [Unknown]
  - Atelectasis [Unknown]

NARRATIVE: CASE EVENT DATE: 20250407
